FAERS Safety Report 8276288-6 (Version None)
Quarter: 2012Q2

REPORT INFORMATION
  Report Type: 
  Country: None (occurrence: None)
  Receive Date: 20120412
  Receipt Date: 20120411
  Transmission Date: 20120825
  Serious: Yes (Death)
  Sender: FDA-Public Use
  Company Number: PHFR2012GB000440

PATIENT
  Sex: Male

DRUGS (15)
  1. PIZOTIFEN [Concomitant]
     Dosage: 1.5 G, AT NIGHT.
  2. PAROXETINE [Concomitant]
     Dosage: 40 MG, QD
     Route: 048
  3. MULTI-VITAMIN [Concomitant]
     Dosage: 1 DF, QD
     Route: 048
  4. SALMETEROL [Concomitant]
  5. HYOSCINE HYDROBROMIDE [Concomitant]
     Dosage: 300 UG, QD
     Route: 048
  6. CLOZARIL [Suspect]
     Indication: SCHIZOPHRENIA
     Dosage: 550 MG, DAILY
     Route: 048
     Dates: start: 20080626
  7. PROCYCLIDINE HYDROCHLORIDE 2MG TAB [Concomitant]
     Dosage: 10 MG, QD
     Route: 048
  8. MAXEPA [Concomitant]
     Dosage: 5 DF, QD
     Route: 048
  9. DOMPERIDONE [Concomitant]
     Dosage: 10 MG, BID
  10. VALPROATE SODIUM [Concomitant]
     Dosage: 600 MG, BID
  11. FYBOGEL [Concomitant]
     Dosage: 1 DF, SACHET DAILY
  12. MAGNESIUM TRISILICATE [Concomitant]
     Dosage: 1 DF, BID
  13. RISPERIDONE [Concomitant]
     Dosage: 4 MG, QD
     Route: 048
  14. SIMVASTATIN [Concomitant]
     Dosage: 40 MG, QD
     Route: 048
  15. DOCUSATE SODIUM [Concomitant]
     Dosage: 100 MG, QD

REACTIONS (1)
  - DEATH [None]
